FAERS Safety Report 11741395 (Version 2)
Quarter: 2016Q2

REPORT INFORMATION
  Report Type: Report from Study
  Country: US (occurrence: US)
  Receive Date: 20151116
  Receipt Date: 20160517
  Transmission Date: 20160815
  Serious: Yes (Death)
  Sender: FDA-Public Use
  Company Number: US-AMGEN-USASL2015119300

PATIENT
  Sex: Male

DRUGS (12)
  1. NEULASTA [Suspect]
     Active Substance: PEGFILGRASTIM
     Indication: PRODUCT USED FOR UNKNOWN INDICATION
     Dosage: UNK
     Route: 065
  2. AVASTIN [Suspect]
     Active Substance: BEVACIZUMAB
     Dosage: 1860 MG, UNK
     Route: 042
  3. AVASTIN [Suspect]
     Active Substance: BEVACIZUMAB
     Dosage: 1800 MG, UNK
     Route: 042
  4. ALOXI [Concomitant]
     Active Substance: PALONOSETRON HYDROCHLORIDE
     Dosage: UNK
  5. PEPCID [Concomitant]
     Active Substance: FAMOTIDINE
     Dosage: UNK
  6. AVASTIN [Suspect]
     Active Substance: BEVACIZUMAB
     Dosage: 1810 MG, UNK
     Route: 042
  7. AVASTIN [Suspect]
     Active Substance: BEVACIZUMAB
     Dosage: 1830 MG, UNK
     Route: 042
  8. AVASTIN [Suspect]
     Active Substance: BEVACIZUMAB
     Dosage: 1900 MG, UNK
     Route: 042
  9. EMEND [Concomitant]
     Active Substance: APREPITANT
     Dosage: UNK
  10. AVASTIN [Suspect]
     Active Substance: BEVACIZUMAB
     Indication: LUNG NEOPLASM MALIGNANT
     Dosage: 2060 MG, UNK
     Route: 042
     Dates: start: 20131211
  11. DECADRON [Concomitant]
     Active Substance: DEXAMETHASONE
     Dosage: UNK
  12. CARBOPLATIN. [Concomitant]
     Active Substance: CARBOPLATIN
     Dosage: 900 MG, UNK

REACTIONS (1)
  - Adenocarcinoma [Fatal]
